FAERS Safety Report 22136319 (Version 1)
Quarter: 2023Q1

REPORT INFORMATION
  Report Type: Other
  Country: IT (occurrence: None)
  Receive Date: 20230324
  Receipt Date: 20230324
  Transmission Date: 20230417
  Serious: Yes (Other)
  Sender: FDA-Public Use
  Company Number: IT-MLMSERVICE-20190326-0019640-1

PATIENT
  Age: 31 Year
  Sex: Female

DRUGS (5)
  1. GONAL-F [Suspect]
     Active Substance: FOLLITROPIN
     Indication: In vitro fertilisation
     Dosage: STARTED ONE DAY AFTER THE MENSTRUAL CYCLE
     Route: 058
  2. PROGESTERONE [Suspect]
     Active Substance: PROGESTERONE
     Indication: In vitro fertilisation
  3. BUSERELIN [Suspect]
     Active Substance: BUSERELIN
     Indication: In vitro fertilisation
  4. BUSERELIN [Suspect]
     Active Substance: BUSERELIN
  5. LUVERIS [Concomitant]
     Active Substance: LUTROPIN ALFA
     Indication: Product used for unknown indication
     Dosage: GIVEN TO THE PATIENT FOUR DAYS AFTER THE BEGINNING OF MENSTRUAL CYCLE

REACTIONS (1)
  - Choroidal neovascularisation [Recovered/Resolved]
